FAERS Safety Report 23001812 (Version 2)
Quarter: 2024Q2

REPORT INFORMATION
  Report Type: Spontaneous
  Country: US (occurrence: US)
  Receive Date: 20230928
  Receipt Date: 20240521
  Transmission Date: 20240716
  Serious: Yes (Other)
  Sender: FDA-Public Use
  Company Number: US-HIKMA PHARMACEUTICALS USA INC.-US-H14001-23-65312

PATIENT

DRUGS (21)
  1. ADALIMUMAB [Suspect]
     Active Substance: ADALIMUMAB\ISOPROPYL ALCOHOL
     Indication: Clostridium difficile infection
     Dosage: 40 MICROGRAM, Q2WEEK
     Route: 065
     Dates: start: 20231009
  2. ADALIMUMAB [Suspect]
     Active Substance: ADALIMUMAB\ISOPROPYL ALCOHOL
     Dosage: UNK
     Route: 065
  3. ADALIMUMAB [Suspect]
     Active Substance: ADALIMUMAB\ISOPROPYL ALCOHOL
     Dosage: UNK
     Route: 065
     Dates: start: 20160115
  4. BUDESONIDE [Suspect]
     Active Substance: BUDESONIDE
     Indication: Clostridium difficile infection
     Dosage: 9 MILLIGRAM, BID
     Route: 065
     Dates: start: 20150819
  5. FIDAXOMICIN [Suspect]
     Active Substance: FIDAXOMICIN
     Indication: Clostridium difficile infection
     Dosage: UNKNOWN
     Route: 065
  6. GOLIMUMAB [Suspect]
     Active Substance: GOLIMUMAB
     Indication: Clostridium difficile infection
     Dosage: UNKNOWN
     Route: 065
  7. HYDROCORTISONE [Suspect]
     Active Substance: HYDROCORTISONE
     Dosage: UNK
     Route: 065
     Dates: start: 20160115
  8. HYDROCORTISONE [Suspect]
     Active Substance: HYDROCORTISONE
     Indication: Clostridium difficile infection
     Dosage: 30 MILLIGRAM
     Route: 065
     Dates: start: 20150619
  9. MERCAPTOPURINE [Suspect]
     Active Substance: MERCAPTOPURINE
     Indication: Clostridium difficile infection
     Dosage: UNKNOWN
     Route: 065
     Dates: start: 20150719, end: 20150819
  10. MESALAMINE [Suspect]
     Active Substance: MESALAMINE
     Indication: Clostridium difficile infection
     Dosage: 1.2 MILLIGRAM, QD
     Route: 048
     Dates: start: 20230719
  11. PREDNISONE [Suspect]
     Active Substance: PREDNISONE
     Dosage: 20 MILLIGRAM
     Route: 065
     Dates: start: 20211109
  12. PREDNISONE [Suspect]
     Active Substance: PREDNISONE
     Indication: Clostridium difficile infection
     Dosage: UNK MILLIGRAM
     Route: 065
     Dates: start: 20150719
  13. SULFASALAZINE [Suspect]
     Active Substance: SULFASALAZINE
     Indication: Clostridium difficile infection
     Dosage: UNKNOWN
     Route: 065
  14. TOFACITINIB [Suspect]
     Active Substance: TOFACITINIB
     Indication: Clostridium difficile infection
     Dosage: UNKNOWN
     Route: 065
  15. VANCOMYCIN [Suspect]
     Active Substance: VANCOMYCIN
     Dosage: UNK
     Route: 048
     Dates: start: 20170331
  16. VANCOMYCIN [Suspect]
     Active Substance: VANCOMYCIN
     Dosage: UNK
     Route: 048
     Dates: start: 20170526
  17. VANCOMYCIN [Suspect]
     Active Substance: VANCOMYCIN
     Dosage: UNK
     Route: 048
     Dates: start: 20190724
  18. VANCOMYCIN [Suspect]
     Active Substance: VANCOMYCIN
     Dosage: UNK
     Route: 048
     Dates: start: 20230819
  19. VANCOMYCIN [Suspect]
     Active Substance: VANCOMYCIN
     Indication: Clostridium difficile infection
     Dosage: 500 MILLIGRAM, QID
     Route: 048
     Dates: start: 20150719
  20. VANCOMYCIN [Suspect]
     Active Substance: VANCOMYCIN
     Dosage: UNK
     Route: 048
     Dates: start: 20230313
  21. VEDOLIZUMAB [Suspect]
     Active Substance: VEDOLIZUMAB
     Indication: Clostridium difficile infection
     Dosage: 300 MILLIGRAM
     Route: 041

REACTIONS (1)
  - Pathogen resistance [Unknown]
